FAERS Safety Report 20087152 (Version 1)
Quarter: 2021Q4

REPORT INFORMATION
  Report Type: Spontaneous
  Country: US (occurrence: None)
  Receive Date: 20211118
  Receipt Date: 20211118
  Transmission Date: 20220303
  Serious: Yes (Hospitalization)
  Sender: FDA-Public Use
  Company Number: None

PATIENT
  Age: 40 Year
  Sex: Female

DRUGS (2)
  1. PULMOZYME [Suspect]
     Active Substance: DORNASE ALFA
     Indication: Chronic respiratory failure
     Dosage: FREQUENCY : DAILY;?
     Route: 055
  2. TOBRAMYCIN [Concomitant]
     Indication: Chronic respiratory failure
     Dosage: OTHER FREQUENCY : Q28D ON/OFF ;?
     Route: 055

REACTIONS (1)
  - Lung disorder [None]

NARRATIVE: CASE EVENT DATE: 20211027
